FAERS Safety Report 8790824 (Version 1)
Quarter: 2012Q4

REPORT INFORMATION
  Report Type: Spontaneous
  Country: GB (occurrence: None)
  Receive Date: 20120907
  Receipt Date: 20120907
  Transmission Date: 20130627
  Serious: Yes (Hospitalization)
  Sender: FDA-Public Use
  Company Number: 1406284

PATIENT
  Age: 64 Year
  Sex: Male

DRUGS (2)
  1. METHOTREXATE [Suspect]
     Indication: RHEUMATOID ARTHRITIS FLARE UP
  2. CORTICOSTEROIDS [Suspect]
     Indication: ARTHRITIS AGGRAVATED

REACTIONS (7)
  - Visceral leishmaniasis [None]
  - Rheumatoid arthritis [None]
  - Pancytopenia [None]
  - Gingival bleeding [None]
  - Vasculitic rash [None]
  - Arthritis [None]
  - Rheumatoid vasculitis [None]
